FAERS Safety Report 8609338-5 (Version None)
Quarter: 2012Q3

REPORT INFORMATION
  Report Type: 
  Country: None (occurrence: None)
  Receive Date: 20120821
  Receipt Date: 20120820
  Transmission Date: 20120928
  Serious: Yes (Death)
  Sender: FDA-Public Use
  Company Number: PHEH2012US016296

PATIENT
  Sex: Male

DRUGS (4)
  1. LUPRON [Concomitant]
  2. MARINOL [Concomitant]
  3. GLEEVEC [Suspect]
     Dosage: 400 MG, EVERY DAY
     Route: 048
  4. ONDANSETRON [Concomitant]

REACTIONS (1)
  - DEATH [None]
